FAERS Safety Report 9805782 (Version 1)
Quarter: 2014Q1

REPORT INFORMATION
  Report Type: Report from Study
  Country: DE (occurrence: DE)
  Receive Date: 20140109
  Receipt Date: 20140109
  Transmission Date: 20141002
  Serious: Yes (Hospitalization, Other)
  Sender: FDA-Public Use
  Company Number: PHHY2014DE001598

PATIENT
  Age: 60 Year
  Sex: Male

DRUGS (5)
  1. LEPONEX [Suspect]
     Dosage: 25- 200 MG, QD
     Route: 048
     Dates: start: 20121228, end: 20130115
  2. FALITHROM [Concomitant]
     Dosage: UNK UKN, UNK
     Route: 048
  3. VALPROIC ACID [Concomitant]
     Dosage: 900 MG, UNK
     Route: 048
     Dates: start: 20121101
  4. VITAMIN B COMPLEX                  /00003501/ [Concomitant]
     Dosage: 1 DF, UNK
     Route: 048
     Dates: start: 20130108
  5. FOLSAN [Concomitant]
     Indication: ANAEMIA PROPHYLAXIS
     Dosage: 5 MG, UNK
     Route: 048
     Dates: start: 20130108

REACTIONS (2)
  - Pericarditis [Recovered/Resolved]
  - Myocarditis [Recovered/Resolved]
